FAERS Safety Report 11463911 (Version 1)
Quarter: 2015Q3

REPORT INFORMATION
  Report Type: Spontaneous
  Country: US (occurrence: US)
  Receive Date: 20150831
  Receipt Date: 20150831
  Transmission Date: 20151125
  Serious: Yes (Other)
  Sender: FDA-Public Use
  Company Number: US-ELI_LILLY_AND_COMPANY-US201105004588

PATIENT
  Age: 61 Year
  Sex: Male

DRUGS (4)
  1. MORPHINE [Concomitant]
     Active Substance: MORPHINE
  2. CYMBALTA [Suspect]
     Active Substance: DULOXETINE HYDROCHLORIDE
     Indication: OSTEOARTHRITIS
     Dosage: 30 MG, UNK
  3. ATIVAN [Concomitant]
     Active Substance: LORAZEPAM
  4. DILANTIN [Concomitant]
     Active Substance: PHENYTOIN

REACTIONS (1)
  - Anxiety [Recovered/Resolved]
